FAERS Safety Report 5891548-1 (Version None)
Quarter: 2008Q3

REPORT INFORMATION
  Report Type: 
  Country: None (occurrence: None)
  Receive Date: 20080918
  Receipt Date: 20080916
  Transmission Date: 20090109
  Serious: Yes (Other)
  Sender: FDA-Public Use
  Company Number: SP02052

PATIENT
  Age: 83 Year
  Sex: Male

DRUGS (3)
  1. VISICOL [Suspect]
     Indication: COLONOSCOPY
     Dosage: 50 GM/ORAL
     Route: 048
     Dates: start: 20080808, end: 20080828
  2. AMLODIPINE BESYLATE [Concomitant]
  3. RANITIDINE [Concomitant]

REACTIONS (2)
  - RENAL FAILURE ACUTE [None]
  - WEIGHT INCREASED [None]
